FAERS Safety Report 19394210 (Version 1)
Quarter: 2021Q2

REPORT INFORMATION
  Report Type: Spontaneous
  Country: US (occurrence: US)
  Receive Date: 20210609
  Receipt Date: 20210609
  Transmission Date: 20210717
  Serious: Yes (Other)
  Sender: FDA-Public Use
  Company Number: US-MYLANLABS-2021M1033457

PATIENT
  Age: 17 Year
  Sex: Male

DRUGS (10)
  1. METHOTREXATE. [Suspect]
     Active Substance: METHOTREXATE
     Indication: B PRECURSOR TYPE ACUTE LEUKAEMIA
     Dosage: MINI?HYPER?CVD REGIMEN
     Route: 065
  2. VENETOCLAX. [Suspect]
     Active Substance: VENETOCLAX
     Dosage: 70 MILLIGRAM, QD
     Route: 048
  3. FLUDARABINE [Concomitant]
     Active Substance: FLUDARABINE PHOSPHATE
     Indication: B PRECURSOR TYPE ACUTE LEUKAEMIA
     Dosage: 30 MILLIGRAM/SQ. METER ON DAYS ?6 TO ?3
     Route: 065
  4. CYTARABINE. [Suspect]
     Active Substance: CYTARABINE
     Indication: B PRECURSOR TYPE ACUTE LEUKAEMIA
     Dosage: MINI?HYPER?CVD REGIMEN
     Route: 065
  5. TISAGENLECLEUCEL?T [Concomitant]
     Active Substance: TISAGENLECLEUCEL
     Indication: B PRECURSOR TYPE ACUTE LEUKAEMIA
     Dosage: 0.6 X 10^6 CELLS/KG
     Route: 065
  6. FLUDARABINE [Concomitant]
     Active Substance: FLUDARABINE PHOSPHATE
     Indication: LYMPHODEPLETION
  7. VENETOCLAX. [Suspect]
     Active Substance: VENETOCLAX
     Indication: B PRECURSOR TYPE ACUTE LEUKAEMIA
     Dosage: 50 MILLIGRAM, QD
     Route: 048
  8. CYCLOPHOSPHAMIDE. [Suspect]
     Active Substance: CYCLOPHOSPHAMIDE
     Indication: B PRECURSOR TYPE ACUTE LEUKAEMIA
     Dosage: 500 MILLIGRAM/SQ. METER ON DAYS ?6 TO ?5
     Route: 065
  9. CYCLOPHOSPHAMIDE. [Suspect]
     Active Substance: CYCLOPHOSPHAMIDE
     Indication: LYMPHODEPLETION
     Dosage: MINI?HYPER?CVD REGIMEN
     Route: 065
  10. DEXAMETHASONE. [Suspect]
     Active Substance: DEXAMETHASONE
     Indication: B PRECURSOR TYPE ACUTE LEUKAEMIA
     Dosage: MINI?HYPER?CVD REGIMEN
     Route: 065

REACTIONS (1)
  - Therapy non-responder [Unknown]
